APPROVED DRUG PRODUCT: REPAGLINIDE
Active Ingredient: REPAGLINIDE
Strength: 0.5MG
Dosage Form/Route: TABLET;ORAL
Application: A090252 | Product #001
Applicant: QUAGEN PHARMACEUTICALS LLC
Approved: Aug 23, 2013 | RLD: No | RS: No | Type: DISCN